FAERS Safety Report 9625765 (Version 2)
Quarter: 2013Q4

REPORT INFORMATION
  Report Type: Other
  Country: TW (occurrence: TW)
  Receive Date: 20131016
  Receipt Date: 20131016
  Transmission Date: 20140711
  Serious: Yes (Other)
  Sender: FDA-Public Use
  Company Number: TW-US-EMD SERONO, INC.-7240905

PATIENT
  Age: 56 Year
  Sex: Female

DRUGS (11)
  1. REBIF [Suspect]
     Indication: MULTIPLE SCLEROSIS
     Route: 058
     Dates: start: 200210
  2. REBIF [Suspect]
     Dates: end: 200808
  3. REBIF [Suspect]
     Dates: start: 200903
  4. MYCOPHENOLATE [Concomitant]
     Indication: PRODUCT USED FOR UNKNOWN INDICATION
  5. PREDNISOLONE [Concomitant]
     Indication: PRODUCT USED FOR UNKNOWN INDICATION
  6. CYCLOPHOSPHAMIDE [Concomitant]
     Indication: PRODUCT USED FOR UNKNOWN INDICATION
  7. AZATHIOPRINE [Concomitant]
     Indication: PRODUCT USED FOR UNKNOWN INDICATION
     Dates: start: 200612
  8. AZATHIOPRINE [Concomitant]
     Dates: start: 200712
  9. AZATHIOPRINE [Concomitant]
     Dates: start: 200801, end: 200805
  10. CARBAMAZEPINE [Concomitant]
     Indication: PRODUCT USED FOR UNKNOWN INDICATION
     Dates: end: 200805
  11. CARBAMAZEPINE [Concomitant]
     Dates: start: 200903

REACTIONS (4)
  - Myelopathy [Unknown]
  - Drug-induced liver injury [Recovered/Resolved]
  - Malaise [Unknown]
  - Chills [Unknown]
